FAERS Safety Report 24581285 (Version 1)
Quarter: 2024Q4

REPORT INFORMATION
  Report Type: Spontaneous
  Country: US (occurrence: None)
  Receive Date: 20241105
  Receipt Date: 20241105
  Transmission Date: 20250114
  Serious: Yes (Life-Threatening, Hospitalization)
  Sender: Public
  Company Number: None

PATIENT
  Age: 57 Year
  Sex: Male

DRUGS (2)
  1. ENFORTUMAB VEDOTIN-EJFV [Suspect]
     Active Substance: ENFORTUMAB VEDOTIN-EJFV
     Indication: Transitional cell carcinoma metastatic
     Dosage: OTHER FREQUENCY : WEEKLY X 2 WEEKS;?
     Route: 042
     Dates: start: 20241008, end: 20241015
  2. PEMBROLIZUMAB [Suspect]
     Active Substance: PEMBROLIZUMAB
     Dates: start: 20241008

REACTIONS (8)
  - Asthenia [None]
  - Nausea [None]
  - Vomiting [None]
  - Hypophagia [None]
  - Diabetic ketoacidosis [None]
  - Insulin resistance [None]
  - Drug level increased [None]
  - Insulin C-peptide increased [None]

NARRATIVE: CASE EVENT DATE: 20241020
